FAERS Safety Report 7294082-X (Version None)
Quarter: 2011Q1

REPORT INFORMATION
  Report Type: 
  Country: None (occurrence: None)
  Receive Date: 20110215
  Receipt Date: 20110210
  Transmission Date: 20110831
  Serious: Yes (Death, Other)
  Sender: FDA-Public Use
  Company Number: AU-B.I. PHARMACEUTICALS,INC./RIDGEFIELD-2011-AU-00064AU

PATIENT
  Sex: Male

DRUGS (1)
  1. SIFROL [Suspect]
     Indication: PARKINSON'S DISEASE

REACTIONS (1)
  - LYMPHOMA [None]
